FAERS Safety Report 18443368 (Version 1)
Quarter: 2020Q4

REPORT INFORMATION
  Report Type: Spontaneous
  Country: US (occurrence: US)
  Receive Date: 20201029
  Receipt Date: 20201029
  Transmission Date: 20210114
  Serious: No
  Sender: FDA-Public Use
  Company Number: US-ELI_LILLY_AND_COMPANY-US202010003981

PATIENT
  Sex: Female

DRUGS (2)
  1. ZOMEGOAL [Concomitant]
     Indication: MIGRAINE
  2. EMGALITY [Suspect]
     Active Substance: GALCANEZUMAB-GNLM
     Indication: MIGRAINE
     Dosage: UNK, UNKNOWN
     Route: 065
     Dates: start: 20200201

REACTIONS (2)
  - Malaise [Unknown]
  - Nasopharyngitis [Unknown]
